FAERS Safety Report 4491233-7 (Version None)
Quarter: 2004Q4

REPORT INFORMATION
  Report Type: 
  Country: None (occurrence: None)
  Receive Date: 20041101
  Receipt Date: 20041101
  Transmission Date: 20050328
  Serious: Yes (Hospitalization)
  Sender: FDA-Public Use
  Company Number: None

PATIENT
  Age: 13 Year
  Sex: Male
  Weight: 43.9989 kg

DRUGS (3)
  1. ROCEPHIN [Suspect]
     Indication: LYME DISEASE
     Dosage: 2 G IV Q 24 H
     Route: 042
     Dates: start: 20041010
  2. ROCEPHIN [Suspect]
     Indication: LYME DISEASE
     Dosage: 2 G IV Q 24 H
     Route: 042
     Dates: start: 20041023
  3. ROCEPHIN [Suspect]

REACTIONS (1)
  - SERUM SICKNESS [None]
